FAERS Safety Report 6946574-8 (Version None)
Quarter: 2010Q3

REPORT INFORMATION
  Report Type: 
  Country: None (occurrence: None)
  Receive Date: 20100827
  Receipt Date: 20090730
  Transmission Date: 20110219
  Serious: No
  Sender: FDA-Public Use
  Company Number: US-ABBOTT-09P-163-0588972-00

PATIENT
  Sex: Male
  Weight: 111.23 kg

DRUGS (2)
  1. NIASPAN [Suspect]
     Indication: BLOOD CHOLESTEROL INCREASED
     Route: 048
     Dates: start: 20080201, end: 20090701
  2. NIASPAN [Suspect]
     Route: 048
     Dates: start: 20090701

REACTIONS (1)
  - MYALGIA [None]
